FAERS Safety Report 8003312-8 (Version None)
Quarter: 2011Q4

REPORT INFORMATION
  Report Type: 
  Country: None (occurrence: None)
  Receive Date: 20111222
  Receipt Date: 20111220
  Transmission Date: 20120403
  Serious: Yes (Death)
  Sender: FDA-Public Use
  Company Number: PHHY2011JP110922

PATIENT
  Age: 78 Year
  Sex: Female
  Weight: 35 kg

DRUGS (25)
  1. TEGRETOL [Suspect]
     Dosage: UNK
  2. OMEPRAZOLE [Concomitant]
  3. MIRACLID [Concomitant]
  4. HEPARIN [Concomitant]
  5. ALBUMIN (HUMAN) [Concomitant]
  6. DIOVAN [Concomitant]
  7. MEROPENEM [Concomitant]
  8. REMINARON [Concomitant]
  9. AMLODIPINE [Concomitant]
     Route: 048
  10. ROXATIDINE ACETATE HCL [Concomitant]
     Route: 048
  11. INTRAFAT [Concomitant]
  12. PHENYTOIN SODIUM CAP [Concomitant]
  13. GONADORELIN ACETATE [Concomitant]
  14. LENDORMIN [Concomitant]
     Route: 048
  15. TRANEXAMIC ACID [Concomitant]
  16. PREDNISOLONE [Concomitant]
  17. RHEUMATREX [Concomitant]
     Route: 048
  18. HALCION [Concomitant]
     Route: 048
  19. TEGRETOL [Suspect]
     Indication: EPILEPSY
     Dosage: 100 MG, DAILY
     Route: 048
     Dates: start: 20110807, end: 20110901
  20. PAZUCROSS [Suspect]
     Indication: DEVICE RELATED INFECTION
     Dosage: 1000 MG, DAILY
     Route: 041
     Dates: start: 20110817, end: 20110831
  21. AMINOTRIPA 1 [Concomitant]
  22. AMINOTRIPA 2 [Concomitant]
  23. VERAPAMIL HCL [Concomitant]
     Route: 048
  24. PROGRAF [Concomitant]
     Route: 048
  25. FOLIC ACID [Concomitant]
     Route: 048

REACTIONS (5)
  - TOXIC EPIDERMAL NECROLYSIS [None]
  - ASPARTATE AMINOTRANSFERASE INCREASED [None]
  - C-REACTIVE PROTEIN INCREASED [None]
  - ALANINE AMINOTRANSFERASE INCREASED [None]
  - RASH [None]
